FAERS Safety Report 17388595 (Version 5)
Quarter: 2020Q4

REPORT INFORMATION
  Report Type: Report from Study
  Country: BE (occurrence: BE)
  Receive Date: 20200206
  Receipt Date: 20201020
  Transmission Date: 20210113
  Serious: Yes (Hospitalization, Other)
  Sender: FDA-Public Use
  Company Number: BE-EXELIXIS-XL18420027121

PATIENT
  Age: 58 Year
  Sex: Male
  Weight: 60.2 kg

DRUGS (20)
  1. PANTOMED [Concomitant]
  2. ATEZOLIZUMAB. [Suspect]
     Active Substance: ATEZOLIZUMAB
     Indication: HORMONE-REFRACTORY PROSTATE CANCER
     Dosage: 1200 MG, Q3WEEKS
     Route: 042
     Dates: start: 20191220, end: 20191220
  3. SERLAIN [Concomitant]
     Active Substance: SERTRALINE HYDROCHLORIDE
  4. ORS [Concomitant]
  5. IMODIUM [Concomitant]
     Active Substance: LOPERAMIDE HYDROCHLORIDE
  6. LITICAN [Concomitant]
     Active Substance: ALIZAPRIDE HYDROCHLORIDE
  7. NILSTAT [Concomitant]
     Active Substance: NYSTATIN
  8. PARACETAMOL TEVA [Concomitant]
  9. INADINE TULLE [Concomitant]
  10. DUROGESIC [Concomitant]
     Active Substance: FENTANYL
  11. ASAFLOW [Concomitant]
     Active Substance: ASPIRIN
  12. ZOLPIDEM [Concomitant]
     Active Substance: ZOLPIDEM TARTRATE
  13. ULTRA-K [Concomitant]
  14. AMOXICILLINE [Concomitant]
     Active Substance: AMOXICILLIN
  15. DEPO ELIGARD [Concomitant]
  16. BISOPROLOL [Concomitant]
     Active Substance: BISOPROLOL
  17. FLAMINAL [Concomitant]
     Active Substance: SODIUM ALGINATE
  18. XL184 [Suspect]
     Active Substance: CABOZANTINIB
     Indication: HORMONE-REFRACTORY PROSTATE CANCER
     Dosage: 40 MG, QD
     Route: 048
     Dates: start: 20191220
  19. OXYNORM [Concomitant]
     Active Substance: OXYCODONE HYDROCHLORIDE
  20. IBUPROFEN. [Concomitant]
     Active Substance: IBUPROFEN

REACTIONS (2)
  - Immune-mediated enterocolitis [Recovered/Resolved with Sequelae]
  - Hypokalaemia [Not Recovered/Not Resolved]

NARRATIVE: CASE EVENT DATE: 20200103
